FAERS Safety Report 10630625 (Version 2)
Quarter: 2017Q2

REPORT INFORMATION
  Report Type: Spontaneous
  Country: DE (occurrence: DE)
  Receive Date: 20141203
  Receipt Date: 20170419
  Transmission Date: 20170829
  Serious: Yes (Death, Life-Threatening, Other)
  Sender: FDA-Public Use
  Company Number: DE-H14001-14-01705

PATIENT
  Age: 56 Year
  Sex: Male

DRUGS (4)
  1. CISPLATIN. [Suspect]
     Active Substance: CISPLATIN
     Indication: TESTICULAR GERM CELL CANCER METASTATIC
     Dosage: 2 DOSES WITH 20 MG/M2, 1 DOSE WITH 10 MG/M2
     Route: 042
     Dates: start: 20120416, end: 20120428
  2. ETOPOSIDE. [Concomitant]
     Active Substance: ETOPOSIDE
     Indication: TESTICULAR GERM CELL CANCER METASTATIC
     Dosage: 2 DOSES WITH 100 MG/M2, 1 DOSE WITH 50 MG/M2
     Route: 042
     Dates: start: 20120416, end: 20120428
  3. CISPLATIN. [Suspect]
     Active Substance: CISPLATIN
     Route: 065
  4. BLEOMYCIN [Concomitant]
     Active Substance: BLEOMYCIN SULFATE
     Indication: TESTICULAR GERM CELL CANCER METASTATIC
     Route: 065

REACTIONS (4)
  - Subdural haemorrhage [Not Recovered/Not Resolved]
  - Cerebral infarction [Not Recovered/Not Resolved]
  - Arterial occlusive disease [Fatal]
  - Brain oedema [Fatal]

NARRATIVE: CASE EVENT DATE: 20120417
